FAERS Safety Report 5583046-X (Version None)
Quarter: 2007Q4

REPORT INFORMATION
  Report Type: 
  Country: None (occurrence: None)
  Receive Date: 20071231
  Receipt Date: 20071218
  Transmission Date: 20080405
  Serious: Yes (Hospitalization, Other)
  Sender: FDA-Public Use
  Company Number: 100#08#2007-05296

PATIENT
  Age: 63 Year
  Sex: Female

DRUGS (3)
  1. CARBOPLATIN [Suspect]
     Indication: NON-HODGKIN'S LYMPHOMA STAGE IV
  2. GEMCITABINE [Suspect]
     Indication: NON-HODGKIN'S LYMPHOMA STAGE IV
  3. RITUXIMAB (RITUXIMAB) (RITUXIMAB) [Suspect]
     Indication: NON-HODGKIN'S LYMPHOMA STAGE IV

REACTIONS (5)
  - ASPERGILLOSIS [None]
  - BRONCHOPULMONARY ASPERGILLOSIS [None]
  - METASTASIS [None]
  - NEUTROPENIA [None]
  - SKIN LESION [None]
